FAERS Safety Report 20903006 (Version 1)
Quarter: 2022Q2

REPORT INFORMATION
  Report Type: Spontaneous
  Country: US (occurrence: UM)
  Receive Date: 20220601
  Receipt Date: 20220601
  Transmission Date: 20220721
  Serious: No
  Sender: FDA-Public Use
  Company Number: US-PFIZER INC-202200771864

PATIENT
  Age: 46 Year
  Sex: Female

DRUGS (3)
  1. PAXLOVID [Suspect]
     Active Substance: NIRMATRELVIR\RITONAVIR
     Indication: COVID-19 treatment
     Dosage: UNK
     Dates: start: 20220518, end: 20220523
  2. NATURE MADE ANTIOXIDANT FORMULA PLUS MINERALS [Concomitant]
     Dosage: UNK
     Dates: start: 20220301, end: 20220516
  3. VITAMIN D3 [Concomitant]
     Active Substance: CHOLECALCIFEROL
     Indication: Vitamin D deficiency
     Dosage: UNK
     Dates: start: 20220301, end: 20220516

REACTIONS (3)
  - Cough [Unknown]
  - Pyrexia [Unknown]
  - Malaise [Unknown]

NARRATIVE: CASE EVENT DATE: 20220527
